FAERS Safety Report 7729238-2 (Version None)
Quarter: 2011Q3

REPORT INFORMATION
  Report Type: 
  Country: None (occurrence: None)
  Receive Date: 20110906
  Receipt Date: 20110824
  Transmission Date: 20111222
  Serious: Yes (Hospitalization)
  Sender: FDA-Public Use
  Company Number: JP-SANOFI-AVENTIS-2011SA056161

PATIENT
  Age: 78 Year
  Sex: Female
  Weight: 40 kg

DRUGS (12)
  1. ETOPOSIDE [Concomitant]
     Indication: CHEMOTHERAPY
     Route: 042
     Dates: start: 20110628, end: 20110702
  2. CYTARABINE [Concomitant]
     Indication: CHEMOTHERAPY
     Route: 042
     Dates: start: 20110628, end: 20110702
  3. RABEPRAZOLE SODIUM [Concomitant]
     Route: 048
  4. NOVANTRONE [Concomitant]
     Indication: CHEMOTHERAPY
     Route: 042
     Dates: start: 20110628, end: 20110702
  5. ASPARA POTASSIUM [Concomitant]
     Route: 048
  6. ACECOL [Concomitant]
     Route: 048
  7. GOODMIN [Concomitant]
     Route: 048
  8. LASIX [Concomitant]
     Route: 048
  9. LEVOFLOXACIN [Concomitant]
     Route: 048
  10. ALL OTHER THERAPEUTIC PRODUCTS [Concomitant]
     Dosage: DOSE:16000 UNIT(S)
     Route: 042
     Dates: end: 20110630
  11. ZOSYN [Concomitant]
     Route: 042
  12. RASBURICASE [Suspect]
     Route: 042
     Dates: start: 20110628, end: 20110629

REACTIONS (1)
  - WHITE BLOOD CELL COUNT DECREASED [None]
